FAERS Safety Report 7764644-1 (Version None)
Quarter: 2011Q3

REPORT INFORMATION
  Report Type: 
  Country: None (occurrence: None)
  Receive Date: 20110921
  Receipt Date: 20110915
  Transmission Date: 20111222
  Serious: Yes (Other)
  Sender: FDA-Public Use
  Company Number: PHHY2011RU82419

PATIENT
  Age: 21 Year
  Sex: Male

DRUGS (3)
  1. EXTAVIA [Suspect]
     Dosage: UNK UKN, UNK
  2. HUMULIN N [Concomitant]
     Dosage: UNK UKN, UNK
  3. HUMULIN R [Concomitant]
     Dosage: UNK UKN, UNK

REACTIONS (5)
  - ERYTHEMA [None]
  - INFLUENZA LIKE ILLNESS [None]
  - OEDEMA [None]
  - INJECTION SITE INDURATION [None]
  - PYREXIA [None]
